FAERS Safety Report 5790112-2 (Version None)
Quarter: 2008Q2

REPORT INFORMATION
  Report Type: 
  Country: None (occurrence: None)
  Receive Date: 20080626
  Receipt Date: 20080325
  Transmission Date: 20081010
  Serious: No
  Sender: FDA-Public Use
  Company Number: A0677720A

PATIENT

DRUGS (5)
  1. ALLI [Suspect]
     Route: 048
     Dates: start: 20070726
  2. BEANO [Suspect]
  3. TYLENOL [Suspect]
  4. UNSPECIFIED MEDICATION [Suspect]
  5. LAXATIVE [Suspect]

REACTIONS (13)
  - CONSTIPATION [None]
  - DIARRHOEA [None]
  - DRUG INEFFECTIVE [None]
  - FAECES DISCOLOURED [None]
  - FLATULENCE [None]
  - FOOD CRAVING [None]
  - FREQUENT BOWEL MOVEMENTS [None]
  - GASTROINTESTINAL SOUNDS ABNORMAL [None]
  - PAIN [None]
  - RECTAL DISCHARGE [None]
  - STEATORRHOEA [None]
  - THERAPEUTIC RESPONSE DECREASED [None]
  - WEIGHT INCREASED [None]
